FAERS Safety Report 15777675 (Version 4)
Quarter: 2019Q1

REPORT INFORMATION
  Report Type: Spontaneous
  Country: US (occurrence: US)
  Receive Date: 20181231
  Receipt Date: 20190304
  Transmission Date: 20190417
  Serious: No
  Sender: FDA-Public Use
  Company Number: US-BAYER-2018-243144

PATIENT
  Age: 66 Year
  Sex: Female
  Weight: 58.05 kg

DRUGS (2)
  1. ZEGERID OTC CAPSULES [Suspect]
     Active Substance: OMEPRAZOLE\SODIUM BICARBONATE
     Dosage: 1 DF, BID
     Route: 048
     Dates: start: 2009
  2. ZEGERID OTC CAPSULES [Suspect]
     Active Substance: OMEPRAZOLE\SODIUM BICARBONATE
     Dosage: UNK
     Dates: start: 2012

REACTIONS (6)
  - Product taste abnormal [Unknown]
  - Product colour issue [None]
  - Regurgitation [None]
  - Inappropriate schedule of product administration [None]
  - Poor quality product administered [Unknown]
  - Product prescribing issue [Unknown]

NARRATIVE: CASE EVENT DATE: 201811
